FAERS Safety Report 10168890 (Version 1)
Quarter: 2014Q2

REPORT INFORMATION
  Report Type: Report from Study
  Country: CA (occurrence: None)
  Receive Date: 20140509
  Receipt Date: 20140509
  Transmission Date: 20141212
  Serious: Yes (Death)
  Sender: FDA-Public Use
  Company Number: CA-015612

PATIENT
  Age: 86 Year
  Sex: Male

DRUGS (10)
  1. FIRMAGON [Suspect]
     Indication: PROSTATE CANCER
     Route: 058
     Dates: start: 20140414, end: 20140414
  2. APO-OXAZEPAM [Concomitant]
  3. DOCUSATE [Concomitant]
  4. M-CAL [Concomitant]
  5. NASONEX [Concomitant]
  6. HYDROCHLOROTHIAZIDE [Concomitant]
  7. RAN-LISINOPRIL [Concomitant]
  8. VALISONE [Concomitant]
  9. VITAMIN B [Concomitant]
  10. TAMSULOSIN [Concomitant]

REACTIONS (3)
  - Post procedural complication [None]
  - Renal failure [None]
  - Septic shock [None]
